FAERS Safety Report 6618523-3 (Version None)
Quarter: 2010Q1

REPORT INFORMATION
  Report Type: 
  Country: None (occurrence: None)
  Receive Date: 20100308
  Receipt Date: 20100302
  Transmission Date: 20100710
  Serious: Yes (Death)
  Sender: FDA-Public Use
  Company Number: US-GILEAD-2010-0027472

PATIENT
  Sex: Male

DRUGS (14)
  1. LETAIRIS [Suspect]
     Indication: PULMONARY ARTERIAL HYPERTENSION
     Route: 048
     Dates: start: 20100119
  2. COUMADIN [Concomitant]
  3. FUROSEMIDE [Concomitant]
  4. ALDACTONE [Concomitant]
  5. METOPROLOL TARTRATE [Concomitant]
  6. ALLOPURINOL [Concomitant]
  7. MULTI-VITAMINS [Concomitant]
  8. TRICOR [Concomitant]
  9. LEVOTHYROXINE [Concomitant]
  10. SPIRIVA [Concomitant]
  11. LIPITOR [Concomitant]
  12. COLCHICINE [Concomitant]
  13. ASPIRIN [Concomitant]
  14. ALBUTEROL [Concomitant]

REACTIONS (1)
  - DEATH [None]
